FAERS Safety Report 10819201 (Version 2)
Quarter: 2016Q1

REPORT INFORMATION
  Report Type: Report from Study
  Country: US (occurrence: US)
  Receive Date: 20150218
  Receipt Date: 20160125
  Transmission Date: 20160525
  Serious: Yes (Other)
  Sender: FDA-Public Use
  Company Number: US-ABBVIE-14K-163-1291415-00

PATIENT
  Age: 53 Year
  Sex: Male

DRUGS (2)
  1. LEFLUNOMIDE. [Suspect]
     Active Substance: LEFLUNOMIDE
     Indication: PRODUCT USED FOR UNKNOWN INDICATION
     Route: 065
     Dates: start: 201411
  2. HUMIRA [Suspect]
     Active Substance: ADALIMUMAB
     Indication: RHEUMATOID ARTHRITIS
     Route: 065
     Dates: start: 20140913

REACTIONS (8)
  - Injection site haemorrhage [Unknown]
  - Inflammation [Unknown]
  - Procedural pain [Unknown]
  - Arthralgia [Not Recovered/Not Resolved]
  - Arthropathy [Unknown]
  - Drug effect decreased [Unknown]
  - Feeling abnormal [Not Recovered/Not Resolved]
  - Drug effect incomplete [Unknown]

NARRATIVE: CASE EVENT DATE: 2014
